FAERS Safety Report 6893088-X (Version None)
Quarter: 2010Q3

REPORT INFORMATION
  Report Type: 
  Country: None (occurrence: None)
  Receive Date: 20100731
  Receipt Date: 20090427
  Transmission Date: 20110219
  Serious: Yes (Death, Other)
  Sender: FDA-Public Use
  Company Number: US-PFIZER INC-2009204530

PATIENT
  Sex: Male

DRUGS (4)
  1. NEURONTIN [Suspect]
     Indication: PAIN
     Dosage: 900 MG, 3X/DAY
     Dates: start: 20040901, end: 20050101
  2. NEURONTIN [Suspect]
     Indication: NERVE INJURY
  3. GABAPENTIN [Suspect]
     Indication: PAIN
     Dosage: 300 MG, UNK
     Dates: start: 20050901
  4. GABAPENTIN [Suspect]
     Indication: NERVE INJURY

REACTIONS (4)
  - ANXIETY [None]
  - COMPLETED SUICIDE [None]
  - DRUG INEFFECTIVE FOR UNAPPROVED INDICATION [None]
  - SUICIDAL IDEATION [None]
